FAERS Safety Report 19964693 (Version 1)
Quarter: 2021Q4

REPORT INFORMATION
  Report Type: Spontaneous
  Country: US (occurrence: US)
  Receive Date: 20211018
  Receipt Date: 20211018
  Transmission Date: 20220303
  Serious: No
  Sender: FDA-Public Use
  Company Number: US-GLAXOSMITHKLINE-US2021210680

PATIENT
  Age: 63 Year
  Sex: Female

DRUGS (2)
  1. BREO ELLIPTA [Suspect]
     Active Substance: FLUTICASONE FUROATE\VILANTEROL TRIFENATATE
     Indication: Asthma
     Dosage: 200 MCG/MG, QOD
     Route: 055
  2. BREO ELLIPTA [Suspect]
     Active Substance: FLUTICASONE FUROATE\VILANTEROL TRIFENATATE
     Indication: Chronic obstructive pulmonary disease
     Dosage: 25 MCG/MG, QD
     Route: 055

REACTIONS (2)
  - Product dose omission issue [Not Recovered/Not Resolved]
  - Intentional underdose [Not Recovered/Not Resolved]

NARRATIVE: CASE EVENT DATE: 20211001
